FAERS Safety Report 8224577-3 (Version None)
Quarter: 2012Q1

REPORT INFORMATION
  Report Type: 
  Country: None (occurrence: None)
  Receive Date: 20120321
  Receipt Date: 20120309
  Transmission Date: 20120608
  Serious: Yes (Other)
  Sender: FDA-Public Use
  Company Number: ES-ELI_LILLY_AND_COMPANY-ES201203002980

PATIENT
  Age: 9 Year
  Sex: Male

DRUGS (1)
  1. STRATTERA [Suspect]
     Dosage: 10 MG, UNKNOWN
     Route: 048
     Dates: start: 20100901, end: 20111201

REACTIONS (4)
  - GROWTH RETARDATION [None]
  - ABNORMAL LOSS OF WEIGHT [None]
  - ATTENTION DEFICIT/HYPERACTIVITY DISORDER [None]
  - NERVOUSNESS [None]
